FAERS Safety Report 21650202 (Version 1)
Quarter: 2022Q4

REPORT INFORMATION
  Report Type: Spontaneous
  Country: US (occurrence: None)
  Receive Date: 20221123
  Receipt Date: 20221123
  Transmission Date: 20230112
  Serious: No
  Sender: FDA-Public Use
  Company Number: None

PATIENT
  Age: 68 Year
  Sex: Male
  Weight: 124.83 kg

DRUGS (10)
  1. ABIRATERONE [Suspect]
     Active Substance: ABIRATERONE
     Indication: Prostate cancer
     Dosage: 1000MG ONCE DAILY ORAL?
     Route: 048
  2. ASPIRIN [Concomitant]
     Active Substance: ASPIRIN
  3. ATORVASTATIN [Concomitant]
     Active Substance: ATORVASTATIN
  4. CARVEDILOL [Concomitant]
     Active Substance: CARVEDILOL
  5. DILANTIN [Concomitant]
     Active Substance: PHENYTOIN
  6. LASIX [Concomitant]
     Active Substance: FUROSEMIDE
  7. PHENOBARBITAL [Concomitant]
     Active Substance: PHENOBARBITAL
  8. POTASSIUM CHLORIDE [Concomitant]
     Active Substance: POTASSIUM CHLORIDE
  9. PREDNISONE [Concomitant]
     Active Substance: PREDNISONE
  10. XARELTO [Concomitant]
     Active Substance: RIVAROXABAN

REACTIONS (2)
  - Therapy non-responder [None]
  - Therapy cessation [None]
